FAERS Safety Report 7686162-1 (Version None)
Quarter: 2011Q3

REPORT INFORMATION
  Report Type: 
  Country: None (occurrence: None)
  Receive Date: 20110816
  Receipt Date: 20110812
  Transmission Date: 20111222
  Serious: Yes (Death)
  Sender: FDA-Public Use
  Company Number: PHEH2011US00916

PATIENT
  Sex: Male

DRUGS (2)
  1. SPRYCEL [Concomitant]
     Dates: start: 20090301, end: 20090501
  2. GLEEVEC [Suspect]
     Indication: CHRONIC MYELOID LEUKAEMIA
     Dosage: 400 MG, DAILY
     Route: 048
     Dates: start: 20070808

REACTIONS (1)
  - DEATH [None]
